FAERS Safety Report 9693161 (Version 1)
Quarter: 2013Q4

REPORT INFORMATION
  Report Type: Spontaneous
  Country: CO (occurrence: CO)
  Receive Date: 20131118
  Receipt Date: 20131118
  Transmission Date: 20140711
  Serious: Yes (Disabling)
  Sender: FDA-Public Use
  Company Number: CO-UCBSA-103142

PATIENT
  Sex: Female

DRUGS (4)
  1. CERTOLIZUMAB PEGOL [Suspect]
     Indication: RHEUMATOID ARTHRITIS
     Route: 058
     Dates: start: 20111212, end: 20130808
  2. ACETAMINOPHEN [Concomitant]
     Dosage: TWICE A DAY, UNKNOWN DOSE
  3. METHOTREXATE [Concomitant]
     Dosage: TWICE A WEEK, UNKNOWN DOSE
  4. NAPROXEN [Concomitant]
     Dosage: 1 TABLET EACH 8 HOURS

REACTIONS (3)
  - Diabetes mellitus [Recovering/Resolving]
  - Urinary tract infection [Recovering/Resolving]
  - Diarrhoea [Recovering/Resolving]
